FAERS Safety Report 6004035-7 (Version None)
Quarter: 2008Q4

REPORT INFORMATION
  Report Type: 
  Country: None (occurrence: None)
  Receive Date: 20081216
  Receipt Date: 20081209
  Transmission Date: 20090506
  Serious: Yes (Hospitalization)
  Sender: FDA-Public Use
  Company Number: A0760410A

PATIENT
  Age: 62 Year
  Sex: Female

DRUGS (3)
  1. THORAZINE [Suspect]
     Route: 065
     Dates: start: 19940101
  2. AMBIEN [Suspect]
     Indication: INSOMNIA
  3. LEVOTHYROXINE SODIUM [Concomitant]

REACTIONS (11)
  - ACCIDENTAL OVERDOSE [None]
  - AMNESIA [None]
  - APHASIA [None]
  - CARDIAC ARREST [None]
  - CEREBROVASCULAR ACCIDENT [None]
  - COMA [None]
  - DRUG INTERACTION [None]
  - LOSS OF CONSCIOUSNESS [None]
  - PARALYSIS [None]
  - PARKINSON'S DISEASE [None]
  - WEIGHT INCREASED [None]
